FAERS Safety Report 10167007 (Version 1)
Quarter: 2014Q2

REPORT INFORMATION
  Report Type: Spontaneous
  Country: US (occurrence: US)
  Receive Date: 20140512
  Receipt Date: 20140512
  Transmission Date: 20141212
  Serious: No
  Sender: FDA-Public Use
  Company Number: US-PFIZER INC-2014129661

PATIENT
  Age: 19 Year
  Sex: Female
  Weight: 63.5 kg

DRUGS (2)
  1. ZOLOFT [Suspect]
     Dosage: 25 MG, 1X/DAY
     Route: 048
     Dates: start: 20140310
  2. LORYNA [Concomitant]
     Indication: CONTRACEPTION
     Dosage: UNK, 1X/DAY

REACTIONS (3)
  - Acne [Unknown]
  - Skin reaction [Unknown]
  - Pruritus [Unknown]
